FAERS Safety Report 6356407-9 (Version None)
Quarter: 2009Q3

REPORT INFORMATION
  Report Type: 
  Country: None (occurrence: None)
  Receive Date: 20090914
  Receipt Date: 20090914
  Transmission Date: 20100115
  Serious: Yes (Life-Threatening)
  Sender: FDA-Public Use
  Company Number: None

PATIENT
  Age: 62 Year
  Sex: Male
  Weight: 78.0187 kg

DRUGS (2)
  1. TAVANIC 500 MG SONOFI AVENTIS [Suspect]
     Indication: CYSTITIS
     Dosage: 500 MG 1 PER DAY PO
     Route: 048
     Dates: start: 20090901, end: 20090909
  2. LEVOFLOXACIN [Suspect]

REACTIONS (5)
  - ABASIA [None]
  - APNOEA [None]
  - DIZZINESS [None]
  - FATIGUE [None]
  - HEART RATE IRREGULAR [None]
